FAERS Safety Report 18668560 (Version 1)
Quarter: 2020Q4

REPORT INFORMATION
  Report Type: Spontaneous
  Country: US (occurrence: US)
  Receive Date: 20201228
  Receipt Date: 20201228
  Transmission Date: 20210114
  Serious: Yes (Hospitalization, Other)
  Sender: FDA-Public Use
  Company Number: US-ALS-000113

PATIENT
  Age: 49 Year
  Sex: Male

DRUGS (1)
  1. METFORMIN [Suspect]
     Active Substance: METFORMIN HYDROCHLORIDE
     Indication: PRODUCT USED FOR UNKNOWN INDICATION
     Route: 065

REACTIONS (5)
  - Drug level above therapeutic [Unknown]
  - Osmolar gap [Recovered/Resolved]
  - Lactic acidosis [Unknown]
  - Starvation ketoacidosis [Unknown]
  - Acute kidney injury [Recovered/Resolved]
